FAERS Safety Report 21706547 (Version 1)
Quarter: 2022Q4

REPORT INFORMATION
  Report Type: Spontaneous
  Country: DK (occurrence: None)
  Receive Date: 20221209
  Receipt Date: 20221209
  Transmission Date: 20230112
  Serious: Yes (Life-Threatening)
  Sender: FDA-Public Use
  Company Number: 2022A399516

PATIENT
  Age: 79 Year
  Sex: Male
  Weight: 64 kg

DRUGS (10)
  1. DAPAGLIFLOZIN [Suspect]
     Active Substance: DAPAGLIFLOZIN
     Indication: Cardiac failure
     Route: 048
     Dates: start: 202203, end: 20221111
  2. CORDAN [Concomitant]
     Indication: Atrial fibrillation
     Route: 065
     Dates: start: 20201215
  3. POTASSIUM CHLORIDE [Concomitant]
     Active Substance: POTASSIUM CHLORIDE
     Indication: Cardiac failure
     Route: 065
     Dates: start: 20200928
  4. ATORVASTATIN [Concomitant]
     Active Substance: ATORVASTATIN
     Indication: Dyslipidaemia
     Route: 065
     Dates: start: 20151116
  5. LEVOTHYROXINE [Concomitant]
     Active Substance: LEVOTHYROXINE
     Indication: Hypothyroidism
     Route: 065
     Dates: start: 20220621
  6. METOPROLOL SUCCINATE [Concomitant]
     Active Substance: METOPROLOL SUCCINATE
     Indication: Atrial fibrillation
     Route: 065
     Dates: start: 20220329
  7. HYDRALAZINE [Concomitant]
     Active Substance: HYDRALAZINE HYDROCHLORIDE
     Indication: Cardiac failure
     Route: 065
     Dates: start: 20220704
  8. NITROGLYCERIN DAK [Concomitant]
     Indication: Myocardial ischaemia
     Route: 065
     Dates: start: 20200928
  9. FUROSEMID ACCORD [Concomitant]
     Indication: Cardiac failure
     Route: 065
     Dates: start: 20211227
  10. IMDUR [Concomitant]
     Active Substance: ISOSORBIDE MONONITRATE
     Indication: Myocardial ischaemia
     Route: 065

REACTIONS (2)
  - Scrotal pain [Unknown]
  - Fournier^s gangrene [Recovered/Resolved]

NARRATIVE: CASE EVENT DATE: 20221103
